FAERS Safety Report 5036300-4 (Version None)
Quarter: 2006Q2

REPORT INFORMATION
  Report Type: 
  Country: None (occurrence: None)
  Receive Date: 20060601
  Receipt Date: 20060424
  Transmission Date: 20061013
  Serious: No
  Sender: FDA-Public Use
  Company Number: US200604004292

PATIENT
  Age: 50 Year
  Sex: Female

DRUGS (2)
  1. CYMBALTA [Suspect]
     Dosage: SEE IMAGE
     Dates: start: 20051102, end: 20060131
  2. CYMBALTA [Suspect]
     Dosage: SEE IMAGE
     Dates: start: 20060201

REACTIONS (1)
  - HYPERTENSION [None]
